FAERS Safety Report 7396124-X (Version None)
Quarter: 2011Q2

REPORT INFORMATION
  Report Type: 
  Country: None (occurrence: None)
  Receive Date: 20110406
  Receipt Date: 20110325
  Transmission Date: 20111010
  Serious: Yes (Hospitalization)
  Sender: FDA-Public Use
  Company Number: JP-ELI_LILLY_AND_COMPANY-JP201103005555

PATIENT
  Sex: Female
  Weight: 48 kg

DRUGS (6)
  1. NEO VITACAIN [Concomitant]
     Route: 065
  2. SOLETON [Concomitant]
     Indication: RHEUMATOID ARTHRITIS
     Dosage: 80 MG, BID
     Route: 048
     Dates: start: 20100804
  3. SOLON [Concomitant]
     Indication: PROPHYLAXIS
     Dosage: 50 MG, BID
     Route: 048
     Dates: start: 20010109
  4. NEUROTROPIN [Concomitant]
     Route: 065
  5. FORTEO [Suspect]
     Indication: OSTEOPOROSIS
     Dosage: 10 UG, QD
     Route: 058
     Dates: start: 20101210
  6. RIZE [Concomitant]
     Indication: INSOMNIA
     Dosage: 5 MG, QD
     Route: 048
     Dates: start: 20051005

REACTIONS (1)
  - SPINAL COMPRESSION FRACTURE [None]
